FAERS Safety Report 4319625-7 (Version None)
Quarter: 2004Q1

REPORT INFORMATION
  Report Type: 
  Country: None (occurrence: None)
  Receive Date: 20040316
  Receipt Date: 20040304
  Transmission Date: 20041129
  Serious: Yes (Death)
  Sender: FDA-Public Use
  Company Number: 163-20785-04030127

PATIENT
  Sex: Female

DRUGS (1)
  1. THALOMID [Suspect]
     Indication: TONGUE NEOPLASM MALIGNANT STAGE UNSPECIFIED
     Dosage: 200 MG, DAILY, ORAL
     Route: 048
     Dates: start: 20011025

REACTIONS (1)
  - ANEURYSM [None]
